FAERS Safety Report 7987049-7 (Version None)
Quarter: 2011Q4

REPORT INFORMATION
  Report Type: 
  Country: None (occurrence: None)
  Receive Date: 20111216
  Receipt Date: 20110921
  Transmission Date: 20120403
  Serious: No
  Sender: FDA-Public Use
  Company Number: US-BRISTOL-MYERS SQUIBB COMPANY-16082273

PATIENT
  Age: 57 Year

DRUGS (1)
  1. ABILIFY [Suspect]
     Dosage: 1DF:HALF TABLET OF 10 MG DOSE REDUCED TO 1/4 MG OF 10MG

REACTIONS (1)
  - MYALGIA [None]
